FAERS Safety Report 7521769-3 (Version None)
Quarter: 2011Q2

REPORT INFORMATION
  Report Type: 
  Country: None (occurrence: None)
  Receive Date: 20110603
  Receipt Date: 20110520
  Transmission Date: 20111010
  Serious: No
  Sender: FDA-Public Use
  Company Number: PHHY2011US33935

PATIENT
  Sex: Female
  Weight: 61.224 kg

DRUGS (10)
  1. TASIGNA [Suspect]
     Dosage: 300 MG, BID
     Route: 048
  2. PROZAC [Concomitant]
     Dosage: 10 MG, UNK
  3. LEVOTHYROXINE SODIUM [Concomitant]
     Dosage: 25 UG, UNK
  4. LIPITOR [Concomitant]
     Dosage: 10 MG, UNK
  5. CALCIUM CARBONATE [Concomitant]
     Dosage: 500 MG, UNK
  6. LOVAZA [Concomitant]
     Dosage: 1000 MG, UNK
  7. XANAX [Concomitant]
     Dosage: 0.25 MG, UNK
  8. VITAMIN D [Concomitant]
     Dosage: 400 U, UNK
  9. COUMADIN [Concomitant]
     Dosage: 1 MG, UNK
  10. URELLE [Concomitant]

REACTIONS (4)
  - CHILLS [None]
  - RASH [None]
  - FATIGUE [None]
  - NERVOUS SYSTEM DISORDER [None]
